FAERS Safety Report 21999010 (Version 1)
Quarter: 2023Q1

REPORT INFORMATION
  Report Type: Spontaneous
  Country: US (occurrence: None)
  Receive Date: 20230215
  Receipt Date: 20230215
  Transmission Date: 20230418
  Serious: No
  Sender: FDA-Public Use
  Company Number: None

PATIENT
  Age: 46 Year
  Sex: Female

DRUGS (1)
  1. TREMFYA [Suspect]
     Active Substance: GUSELKUMAB
     Indication: Psoriasis
     Dosage: INJECT 100MG SUBCUTANEOUSLY  ON WEEK 0 AND WEEK 4 AS DIRECTED
     Route: 058
     Dates: start: 202103

REACTIONS (2)
  - Suspected COVID-19 [None]
  - Dysphonia [None]
